FAERS Safety Report 19660385 (Version 1)
Quarter: 2021Q3

REPORT INFORMATION
  Report Type: Spontaneous
  Country: US (occurrence: US)
  Receive Date: 20210805
  Receipt Date: 20210805
  Transmission Date: 20211014
  Serious: Yes (Other)
  Sender: FDA-Public Use
  Company Number: US-PURDUE-USA-2020-0280443

PATIENT
  Sex: Female

DRUGS (5)
  1. PERCOCET                           /00446701/ [Suspect]
     Active Substance: ACETAMINOPHEN\OXYCODONE HYDROCHLORIDE\OXYCODONE TEREPHTHALATE
     Indication: PIRIFORMIS SYNDROME
     Dosage: 5 MCO/325MG
     Route: 065
  2. HYDROCODONE BITARTRATE (SIMILAR TO NDA 206627) [Suspect]
     Active Substance: HYDROCODONE BITARTRATE
     Indication: PIRIFORMIS SYNDROME
     Dosage: PRN
     Route: 065
  3. VICODIN [Suspect]
     Active Substance: ACETAMINOPHEN\HYDROCODONE BITARTRATE
     Indication: PIRIFORMIS SYNDROME
     Dosage: UNKNOWN
     Route: 065
  4. NEURONTIN [Suspect]
     Active Substance: GABAPENTIN
     Indication: PIRIFORMIS SYNDROME
     Dosage: 300 MG, BID
     Route: 065
  5. ULTRAM [Suspect]
     Active Substance: TRAMADOL HYDROCHLORIDE
     Indication: PIRIFORMIS SYNDROME
     Dosage: 50 MG, PRN
     Route: 065

REACTIONS (2)
  - Impaired work ability [Unknown]
  - Liver injury [Unknown]
